FAERS Safety Report 13582697 (Version 1)
Quarter: 2017Q2

REPORT INFORMATION
  Report Type: Spontaneous
  Country: ES (occurrence: ES)
  Receive Date: 20170525
  Receipt Date: 20170525
  Transmission Date: 20170830
  Serious: Yes (Other)
  Sender: FDA-Public Use
  Company Number: ES-MYLANLABS-2017M1031667

PATIENT

DRUGS (1)
  1. KETAMINE [Suspect]
     Active Substance: KETAMINE
     Indication: SUICIDAL IDEATION
     Dosage: 0.50MG/KG FOR 40 MINUTES; ON DAYS 0, 3, 7, 9, 13, 21, 30, 37, 43, 51, 63 AND 77; TOTAL 12 PERFUSIONS
     Route: 042

REACTIONS (4)
  - Somnolence [Unknown]
  - Feeling abnormal [Unknown]
  - Dizziness [Unknown]
  - Respiratory depression [Recovered/Resolved]
